FAERS Safety Report 5307455-9 (Version None)
Quarter: 2007Q2

REPORT INFORMATION
  Report Type: 
  Country: None (occurrence: None)
  Receive Date: 20070425
  Receipt Date: 20070413
  Transmission Date: 20071010
  Serious: Yes (Other)
  Sender: FDA-Public Use
  Company Number: HQWYE896306APR07

PATIENT
  Sex: Male
  Weight: 9.2 kg

DRUGS (2)
  1. BENEFIX [Suspect]
     Indication: FACTOR IX DEFICIENCY
     Dosage: PROPHYLAXIS TREATMENT OF 510 IU (50-55 IU/KG) EVERY WEEK
     Dates: start: 20061229
  2. BENEFIX [Suspect]
     Dosage: APPROXIMATELY 100 IU/KG
     Dates: start: 20070409, end: 20070409

REACTIONS (1)
  - FACTOR IX INHIBITION [None]
